FAERS Safety Report 24736381 (Version 1)
Quarter: 2024Q4

REPORT INFORMATION
  Report Type: Spontaneous
  Country: JP (occurrence: JP)
  Receive Date: 20241216
  Receipt Date: 20241216
  Transmission Date: 20250115
  Serious: Yes (Other)
  Sender: TAKEDA
  Company Number: JP-TAKEDA-2024TUS124426

PATIENT

DRUGS (1)
  1. RAMELTEON [Suspect]
     Active Substance: RAMELTEON
     Indication: Product used for unknown indication
     Dosage: DOSAGE IS UNKNOWN, TAB. 8MG ^TAKEDA TEVA

REACTIONS (1)
  - Tuberculosis [Unknown]
